FAERS Safety Report 5237466-3 (Version None)
Quarter: 2007Q1

REPORT INFORMATION
  Report Type: 
  Country: None (occurrence: None)
  Receive Date: 20070213
  Receipt Date: 20070131
  Transmission Date: 20070707
  Serious: Yes (Hospitalization)
  Sender: FDA-Public Use
  Company Number: IN-ELI_LILLY_AND_COMPANY-IN200702000390

PATIENT
  Age: 60 Year
  Sex: Female

DRUGS (3)
  1. GEMCITE [Suspect]
     Indication: BREAST CANCER METASTATIC
     Dosage: 2 G, TWO TIMES IN EVERY 3 WEEKS
     Route: 042
  2. CARBOPLATIN [Concomitant]
     Indication: BREAST CANCER METASTATIC
     Dosage: 5 AUC
  3. GRANISETRON [Concomitant]

REACTIONS (1)
  - CARDIAC ARREST [None]
